FAERS Safety Report 22164632 (Version 6)
Quarter: 2023Q4

REPORT INFORMATION
  Report Type: Report from Study
  Country: TR (occurrence: None)
  Receive Date: 20230403
  Receipt Date: 20231020
  Transmission Date: 20240110
  Serious: Yes (Hospitalization)
  Sender: FDA-Public Use
  Company Number: TR-ROCHE-3320653

PATIENT
  Age: 73 Year
  Sex: Male
  Weight: 75 kg

DRUGS (11)
  1. ATEZOLIZUMAB [Suspect]
     Active Substance: ATEZOLIZUMAB
     Indication: Small cell lung cancer extensive stage
     Dosage: ON 08/MAR/2023, PATIENT RECEIVED MOST RECENT DOSE OF ATEZOLIZUMAB PRIOR TO AE AND SAE WAS 1200 MG
     Route: 041
     Dates: start: 20221116
  2. CARBOPLATIN [Suspect]
     Active Substance: CARBOPLATIN
     Indication: Small cell lung cancer extensive stage
     Dosage: ON 18/JAN/2023, PATIENT RECEIVED MOST RECENT DOSE OF CARBOPLATIN PRIOR TO AE AND SAE WAS 580 MG.
     Route: 042
     Dates: start: 20221116
  3. ETOPOSIDE [Suspect]
     Active Substance: ETOPOSIDE
     Indication: Small cell lung cancer extensive stage
     Dosage: ON 18/JAN/2023, PATIENT RECEIVED MOST RECENT DOSE OF ETOPOSIDE PRIOR TO AE AND SAE WAS 195 MG.
     Route: 042
     Dates: start: 20221116
  4. METFORMIN HYDROCHLORIDE [Concomitant]
     Active Substance: METFORMIN HYDROCHLORIDE
     Indication: Type 2 diabetes mellitus
     Dates: start: 2000
  5. BETANORM (TURKEY) [Concomitant]
     Indication: Type 2 diabetes mellitus
     Dates: start: 2000
  6. FRAVEN [Concomitant]
     Route: 058
     Dates: start: 20221120
  7. FENIRAMINE [Concomitant]
     Indication: Premedication
     Dates: start: 20221116
  8. DEXAMETHASONE [Concomitant]
     Active Substance: DEXAMETHASONE
     Indication: Premedication
     Dates: start: 20221116
  9. ONZYD [Concomitant]
     Indication: Nausea
     Dates: start: 20221207
  10. MAGNESIE CALCINEE [Concomitant]
     Indication: Constipation
     Dates: start: 20221207
  11. PHENIRAMINE [Concomitant]
     Active Substance: PHENIRAMINE
     Indication: Pruritus
     Dates: start: 20221228

REACTIONS (1)
  - Transient ischaemic attack [Recovered/Resolved]

NARRATIVE: CASE EVENT DATE: 20230327
